FAERS Safety Report 12924781 (Version 4)
Quarter: 2016Q4

REPORT INFORMATION
  Report Type: Spontaneous
  Country: US (occurrence: US)
  Receive Date: 20161108
  Receipt Date: 20161208
  Transmission Date: 20170207
  Serious: Yes (Other)
  Sender: FDA-Public Use
  Company Number: US-CELGENEUS-USA-2016081084

PATIENT
  Age: 68 Year
  Sex: Female

DRUGS (6)
  1. REVLIMID [Suspect]
     Active Substance: LENALIDOMIDE
     Indication: PLASMA CELL MYELOMA
     Dosage: 25MG
     Route: 048
     Dates: start: 201002
  2. REVLIMID [Suspect]
     Active Substance: LENALIDOMIDE
     Dosage: 5MG
     Route: 048
     Dates: start: 20140211
  3. REVLIMID [Suspect]
     Active Substance: LENALIDOMIDE
     Dosage: 5MG
     Route: 048
     Dates: start: 20160810
  4. REVLIMID [Suspect]
     Active Substance: LENALIDOMIDE
     Dosage: 5MG
     Route: 048
     Dates: start: 20160803
  5. REVLIMID [Suspect]
     Active Substance: LENALIDOMIDE
     Dosage: 15-10 MG
     Route: 048
     Dates: start: 201006
  6. REVLIMID [Suspect]
     Active Substance: LENALIDOMIDE
     Dosage: 5MG
     Route: 048
     Dates: start: 201302

REACTIONS (3)
  - Neuropathy peripheral [Not Recovered/Not Resolved]
  - Foot fracture [Not Recovered/Not Resolved]
  - Back pain [Unknown]

NARRATIVE: CASE EVENT DATE: 20161015
